FAERS Safety Report 7483110-4 (Version None)
Quarter: 2011Q2

REPORT INFORMATION
  Report Type: 
  Country: None (occurrence: None)
  Receive Date: 20110516
  Receipt Date: 20101124
  Transmission Date: 20111010
  Serious: Yes (Death, Hospitalization, Other)
  Sender: FDA-Public Use
  Company Number: US-AMGEN-USASP2010004583

PATIENT
  Age: 89 Year
  Sex: Female
  Weight: 77.551 kg

DRUGS (12)
  1. ADVAIR DISKUS 100/50 [Concomitant]
  2. LISINOPRIL [Concomitant]
  3. NORVASC [Concomitant]
  4. FERREX 150 FORTE [Concomitant]
  5. LASIX [Concomitant]
  6. SERTRALINE HYDROCHLORIDE [Concomitant]
  7. NPLATE [Suspect]
     Dosage: 8 A?G/KG, UNK
     Dates: start: 20100527, end: 20100827
  8. ATENOLOL [Concomitant]
  9. FLUTICASONE PROPIONATE [Concomitant]
  10. XALATAN [Concomitant]
  11. TRIAMCINOLONE [Concomitant]
  12. NPLATE [Suspect]
     Indication: IDIOPATHIC THROMBOCYTOPENIC PURPURA
     Dosage: 8 A?G/KG, UNK
     Dates: start: 20100527, end: 20100827

REACTIONS (7)
  - PNEUMONIA ASPIRATION [None]
  - BEDRIDDEN [None]
  - GENERAL PHYSICAL HEALTH DETERIORATION [None]
  - SOMNOLENCE [None]
  - MULTIMORBIDITY [None]
  - CEREBROVASCULAR ACCIDENT [None]
  - DYSPNOEA [None]
